FAERS Safety Report 4609008-4 (Version None)
Quarter: 2005Q1

REPORT INFORMATION
  Report Type: 
  Country: None (occurrence: None)
  Receive Date: 20050311
  Receipt Date: 20050226
  Transmission Date: 20050727
  Serious: Yes (Hospitalization, Other)
  Sender: FDA-Public Use
  Company Number: 2005011278

PATIENT
  Sex: Female
  Weight: 133.8111 kg

DRUGS (8)
  1. DEPO-ESTRADIOL [Suspect]
     Indication: MENOPAUSAL SYMPTOMS
     Dosage: 1 ML (1 ML, EVERY 3-4 WEEKS)
     Dates: start: 20030501, end: 20030101
  2. DEPO-TESTADIOL [Suspect]
     Indication: MENOPAUSAL SYMPTOMS
     Dosage: 1 ML (1 ML, EVERY 3-4 WEEKS)
     Dates: start: 19980101, end: 20030101
  3. ROSIGLITAZONE MALEATE [Concomitant]
  4. METFORMIN HCL [Concomitant]
  5. GLIBOMET (GLIBENCLAMIDE, METFORMIN HYDROCHLORIDE) [Concomitant]
  6. GABAPENTIN [Concomitant]
  7. METOPROLOL SUCCINATE [Concomitant]
  8. CARVEDILOL [Concomitant]

REACTIONS (5)
  - AMENORRHOEA [None]
  - CARDIAC FAILURE CONGESTIVE [None]
  - FOOT FRACTURE [None]
  - MEDICATION ERROR [None]
  - MENORRHAGIA [None]
